FAERS Safety Report 14268155 (Version 2)
Quarter: 2018Q2

REPORT INFORMATION
  Report Type: Spontaneous
  Country: US (occurrence: US)
  Receive Date: 20171211
  Receipt Date: 20180620
  Transmission Date: 20180711
  Serious: Yes (Other)
  Sender: FDA-Public Use
  Company Number: US-ASTRAZENECA-2017SF24111

PATIENT
  Age: 59 Year
  Sex: Male
  Weight: 102.1 kg

DRUGS (30)
  1. CLONIDINE HYDROCHLORIDE. [Concomitant]
     Active Substance: CLONIDINE HYDROCHLORIDE
     Route: 048
  2. CANDESARTAN CILEXETIL. [Concomitant]
     Active Substance: CANDESARTAN CILEXETIL
     Route: 048
  3. ROCALTROL [Concomitant]
     Active Substance: CALCITRIOL
  4. CARDURA [Concomitant]
     Active Substance: DOXAZOSIN MESYLATE
  5. MIRALAX [Concomitant]
     Active Substance: POLYETHYLENE GLYCOL 3350
  6. CLOBETASOL [Concomitant]
     Active Substance: CLOBETASOL
  7. CALCIUM [Concomitant]
     Active Substance: CALCIUM
  8. NITROGLYCERIN. [Concomitant]
     Active Substance: NITROGLYCERIN
  9. DOXAZOSIN [Concomitant]
     Active Substance: DOXAZOSIN\DOXAZOSIN MESYLATE
     Dosage: ONE IN THE MORNING AND ONE AND HALF IN EVENUNG
     Route: 048
  10. TUMS [Concomitant]
     Active Substance: CALCIUM CARBONATE
     Route: 048
  11. LOSARTAN. [Concomitant]
     Active Substance: LOSARTAN
  12. PLAVIX [Concomitant]
     Active Substance: CLOPIDOGREL BISULFATE
  13. SORBITOL. [Concomitant]
     Active Substance: SORBITOL
  14. ASPIRIN. [Concomitant]
     Active Substance: ASPIRIN
     Route: 048
  15. CARVEDIOL [Concomitant]
     Active Substance: CARVEDILOL
     Route: 048
  16. VITAMIN D [Concomitant]
     Active Substance: CHOLECALCIFEROL
  17. PREVACID [Suspect]
     Active Substance: LANSOPRAZOLE
     Indication: GASTROOESOPHAGEAL REFLUX DISEASE
     Route: 065
     Dates: start: 2015
  18. LASIX [Concomitant]
     Active Substance: FUROSEMIDE
     Route: 048
  19. MIRCERA [Concomitant]
     Active Substance: METHOXY POLYETHYLENE GLYCOL-EPOETIN BETA
  20. NEXIUM [Suspect]
     Active Substance: ESOMEPRAZOLE MAGNESIUM
     Indication: GASTROOESOPHAGEAL REFLUX DISEASE
     Route: 048
     Dates: start: 2005, end: 2014
  21. LASIX [Concomitant]
     Active Substance: FUROSEMIDE
     Dosage: 1 AND HALF TAB DAILY
     Route: 048
  22. CENTRUM [Concomitant]
     Active Substance: VITAMINS
  23. LEVEMIR [Concomitant]
     Active Substance: INSULIN DETEMIR
     Route: 065
  24. VITAMIN C [Concomitant]
     Active Substance: ASCORBIC ACID
  25. AMLODIPINE [Concomitant]
     Active Substance: AMLODIPINE BESYLATE
  26. NEXIUM 24HR [Suspect]
     Active Substance: ESOMEPRAZOLE MAGNESIUM
     Route: 048
  27. PRILOSEC [Suspect]
     Active Substance: OMEPRAZOLE MAGNESIUM
     Indication: GASTROOESOPHAGEAL REFLUX DISEASE
     Route: 048
     Dates: start: 1999
  28. RENVELA [Concomitant]
     Active Substance: SEVELAMER CARBONATE
  29. NEXIUM [Suspect]
     Active Substance: ESOMEPRAZOLE MAGNESIUM
     Indication: GASTROOESOPHAGEAL REFLUX DISEASE
     Route: 048
     Dates: start: 2005, end: 2014
  30. CARTIA XT [Concomitant]
     Active Substance: DILTIAZEM HYDROCHLORIDE
     Route: 048

REACTIONS (6)
  - End stage renal disease [Not Recovered/Not Resolved]
  - Coronary artery disease [Unknown]
  - Type 2 diabetes mellitus [Unknown]
  - Hypertension [Unknown]
  - Colon cancer [Unknown]
  - Chronic kidney disease [Not Recovered/Not Resolved]

NARRATIVE: CASE EVENT DATE: 2007
